FAERS Safety Report 8401467-4 (Version None)
Quarter: 2012Q2

REPORT INFORMATION
  Report Type: 
  Country: None (occurrence: None)
  Receive Date: 20120601
  Receipt Date: 20120514
  Transmission Date: 20120825
  Serious: Yes (Other)
  Sender: FDA-Public Use
  Company Number: IT-NOVOPROD-349493

PATIENT
  Age: 74 Year
  Sex: Female
  Weight: 57 kg

DRUGS (6)
  1. VAGIFEM [Suspect]
     Dosage: TWICE WEEKLY FOR 10 WEEKS
  2. PAROXETINE HCL [Concomitant]
     Dosage: 10 MG
  3. PERINDOPRIL ERBUMINE [Concomitant]
     Dosage: 4 MG, QD
  4. ASPIRIN [Concomitant]
     Dosage: 75MG/3TIMES PER WEEK
  5. VAGIFEM [Suspect]
     Indication: PRODUCT USED FOR UNKNOWN INDICATION
     Dosage: ONCE DAILY FOR 2 WEEKS
     Route: 065
     Dates: start: 20100101
  6. VAGIFEM [Suspect]
     Dosage: ONCE WEEKLY

REACTIONS (1)
  - OVARIAN EPITHELIAL CANCER [None]
